FAERS Safety Report 9123044 (Version 1)
Quarter: 2013Q1

REPORT INFORMATION
  Report Type: Spontaneous
  Country: US (occurrence: None)
  Receive Date: 20130225
  Receipt Date: 20130225
  Transmission Date: 20140127
  Serious: Yes (Hospitalization)
  Sender: FDA-Public Use
  Company Number: None

PATIENT
  Age: 46 Year
  Sex: Male
  Weight: 99 kg

DRUGS (1)
  1. JANUVIA [Suspect]
     Dosage: 100MG DAILY PO
     Route: 048

REACTIONS (1)
  - Pancreatitis acute [None]
